FAERS Safety Report 7213363-9 (Version None)
Quarter: 2011Q1

REPORT INFORMATION
  Report Type: 
  Country: None (occurrence: None)
  Receive Date: 20110106
  Receipt Date: 20101224
  Transmission Date: 20110831
  Serious: No
  Sender: FDA-Public Use
  Company Number: US-B.I. PHARMACEUTICALS,INC./RIDGEFIELD-2011-BP-00078BP

PATIENT
  Sex: Male

DRUGS (4)
  1. FLOMAX [Suspect]
     Indication: PROSTATOMEGALY
     Route: 048
     Dates: start: 20060101
  2. PROSCAR [Concomitant]
     Indication: PROSTATOMEGALY
  3. DULCOLAX [Suspect]
     Indication: CONSTIPATION
     Dosage: 10 MG
     Route: 054
     Dates: start: 20101224, end: 20101224
  4. HYDROCHLOROTHIAZIDE [Concomitant]
     Indication: HYPERTENSION

REACTIONS (3)
  - PLANTAR FASCIITIS [None]
  - CONSTIPATION [None]
  - ANORECTAL DISCOMFORT [None]
